FAERS Safety Report 9060243 (Version 1)
Quarter: 2013Q1

REPORT INFORMATION
  Report Type: Spontaneous
  Country: ZA (occurrence: ZA)
  Receive Date: 20130212
  Receipt Date: 20130212
  Transmission Date: 20140127
  Serious: Yes (Death, Life-Threatening, Hospitalization)
  Sender: FDA-Public Use
  Company Number: ZA-ASTELLAS-2013US001523

PATIENT
  Age: 67 None
  Sex: Male
  Weight: 88 kg

DRUGS (2)
  1. TARCEVA [Suspect]
     Indication: PANCREATIC CARCINOMA
     Dosage: 100 MG, UID/QD
     Route: 048
     Dates: start: 20111208
  2. GEMZAR [Concomitant]
     Indication: PRODUCT USED FOR UNKNOWN INDICATION
     Dosage: 1.25 G/M2, UNKNOWN/D
     Route: 065
     Dates: start: 20110922

REACTIONS (4)
  - Interstitial lung disease [Recovering/Resolving]
  - Respiratory distress [Recovered/Resolved]
  - Death [Fatal]
  - Interstitial lung disease [Recovering/Resolving]
